FAERS Safety Report 9063290 (Version 2)
Quarter: 2013Q2

REPORT INFORMATION
  Report Type: Spontaneous
  Country: JP (occurrence: JP)
  Receive Date: 20130213
  Receipt Date: 20130626
  Transmission Date: 20140414
  Serious: Yes (Other)
  Sender: FDA-Public Use
  Company Number: JP-JNJFOC-20130200459

PATIENT
  Age: 11 Year
  Sex: Female

DRUGS (6)
  1. ZYRTEC [Suspect]
     Route: 048
  2. ZYRTEC [Suspect]
     Indication: RHINITIS ALLERGIC
     Route: 048
     Dates: start: 200705
  3. XYZAL [Suspect]
     Indication: RHINITIS ALLERGIC
     Route: 048
     Dates: start: 201203, end: 201206
  4. FLUNASE [Concomitant]
     Indication: RHINITIS ALLERGIC
     Route: 045
  5. CHINESE MEDICATION [Concomitant]
     Indication: RHINITIS ALLERGIC
     Route: 065
  6. CHINESE MEDICATION [Concomitant]
     Indication: RHINITIS ALLERGIC
     Route: 065

REACTIONS (3)
  - Suicidal ideation [Recovered/Resolved]
  - Anxiety [Recovered/Resolved]
  - Aggression [Recovered/Resolved]
